FAERS Safety Report 14435120 (Version 1)
Quarter: 2018Q1

REPORT INFORMATION
  Report Type: Spontaneous
  Country: US (occurrence: US)
  Receive Date: 20180125
  Receipt Date: 20180125
  Transmission Date: 20180509
  Serious: Yes (Other)
  Sender: FDA-Public Use
  Company Number: US-ROCHE-2055280

PATIENT
  Age: 38 Year
  Sex: Female
  Weight: 112.5 kg

DRUGS (7)
  1. ENBREL [Suspect]
     Active Substance: ETANERCEPT
     Indication: RHEUMATOID ARTHRITIS
     Route: 065
  2. METHOTREXATE. [Concomitant]
     Active Substance: METHOTREXATE
     Route: 065
  3. HUMIRA [Concomitant]
     Active Substance: ADALIMUMAB
     Route: 065
  4. ACTEMRA [Suspect]
     Active Substance: TOCILIZUMAB
     Indication: RHEUMATOID ARTHRITIS
     Route: 065
  5. XELJANZ [Suspect]
     Active Substance: TOFACITINIB CITRATE
     Indication: RHEUMATOID ARTHRITIS
     Route: 048
     Dates: start: 20170916, end: 20171204
  6. SULFASALAZINE. [Concomitant]
     Active Substance: SULFASALAZINE
     Route: 065
  7. PLAQUENIL [Concomitant]
     Active Substance: HYDROXYCHLOROQUINE SULFATE
     Route: 065

REACTIONS (16)
  - Drug hypersensitivity [Unknown]
  - Stomatitis [Unknown]
  - Mouth ulceration [Unknown]
  - Infection [Unknown]
  - Cyst [Unknown]
  - Drug ineffective [Unknown]
  - Weight increased [Unknown]
  - Pyrexia [Unknown]
  - Neuropathy peripheral [Unknown]
  - Fluid retention [Unknown]
  - Dizziness [Unknown]
  - Furuncle [Unknown]
  - Headache [Unknown]
  - Herpes zoster [Unknown]
  - Candida infection [Not Recovered/Not Resolved]
  - Blood pressure increased [Unknown]

NARRATIVE: CASE EVENT DATE: 201712
